FAERS Safety Report 8205693 (Version 3)
Quarter: 2013Q3

REPORT INFORMATION
  Report Type: Report from Study
  Country: US (occurrence: US)
  Receive Date: 20111028
  Receipt Date: 20130822
  Transmission Date: 20140515
  Serious: Yes (Hospitalization, Other)
  Sender: FDA-Public Use
  Company Number: PHEH2011US07423

PATIENT
  Sex: Female
  Weight: 86.4 kg

DRUGS (2)
  1. EXJADE [Suspect]
     Indication: MYELODYSPLASTIC SYNDROME
     Dosage: 1500 MG, QD
     Route: 048
     Dates: start: 20110131
  2. EXJADE [Suspect]
     Dosage: 500 MG, TID
     Route: 048
     Dates: start: 20120827

REACTIONS (4)
  - Pneumonia [Unknown]
  - Cough [Unknown]
  - Anorectal discomfort [Unknown]
  - Nausea [Unknown]
